FAERS Safety Report 5848569-4 (Version None)
Quarter: 2008Q3

REPORT INFORMATION
  Report Type: 
  Country: None (occurrence: None)
  Receive Date: 20080815
  Receipt Date: 20080815
  Transmission Date: 20090109
  Serious: Yes (Life-Threatening, Hospitalization, Disabling)
  Sender: FDA-Public Use
  Company Number: None

PATIENT
  Age: 35 Year
  Sex: Female
  Weight: 60.782 kg

DRUGS (1)
  1. BACTRIM [Suspect]
     Indication: SINUSITIS
     Dosage: 1 PILL TWICE A DAY PO
     Route: 048
     Dates: start: 20080801, end: 20080802

REACTIONS (2)
  - RENAL DISORDER [None]
  - STEVENS-JOHNSON SYNDROME [None]
